FAERS Safety Report 12978587 (Version 1)
Quarter: 2016Q4

REPORT INFORMATION
  Report Type: Spontaneous
  Country: US (occurrence: US)
  Receive Date: 20161123
  Receipt Date: 20161123
  Transmission Date: 20170207
  Serious: No
  Sender: FDA-Public Use
  Company Number: None

PATIENT
  Age: 67 Year
  Sex: Female

DRUGS (8)
  1. FAMOTIDINE. [Concomitant]
     Active Substance: FAMOTIDINE
  2. TRAZODONE [Concomitant]
     Active Substance: TRAZODONE HYDROCHLORIDE
  3. BORTEZOMIB [Concomitant]
     Active Substance: BORTEZOMIB
  4. ASA [Concomitant]
     Active Substance: ASPIRIN
  5. REVLIMID [Suspect]
     Active Substance: LENALIDOMIDE
     Indication: PLASMA CELL MYELOMA
     Route: 048
     Dates: start: 20160617, end: 20161016
  6. DEXAMETHASONE. [Concomitant]
     Active Substance: DEXAMETHASONE
  7. ACYCLOVIR. [Concomitant]
     Active Substance: ACYCLOVIR
  8. LORAZEPAM. [Concomitant]
     Active Substance: LORAZEPAM

REACTIONS (3)
  - Erythema [None]
  - Skin exfoliation [None]
  - Rash [None]

NARRATIVE: CASE EVENT DATE: 20161016
